FAERS Safety Report 7893466-6 (Version None)
Quarter: 2011Q4

REPORT INFORMATION
  Report Type: 
  Country: None (occurrence: None)
  Receive Date: 20111104
  Receipt Date: 20111028
  Transmission Date: 20120403
  Serious: Yes (Hospitalization)
  Sender: FDA-Public Use
  Company Number: US-US-EMD SERONO, INC.-7006076

PATIENT
  Sex: Female
  Weight: 82 kg

DRUGS (5)
  1. REBIF [Suspect]
     Indication: MULTIPLE SCLEROSIS
     Route: 058
     Dates: start: 20090421
  2. IBUPROFEN (ADVIL) [Concomitant]
     Indication: PREMEDICATION
  3. UNSPECIFIED MEDICATION [Concomitant]
     Indication: OSTEOPOROSIS
     Route: 048
  4. UNSPECIFIED MEDICATION [Concomitant]
     Indication: HYPERTENSION
  5. BACLOFEN [Concomitant]
     Indication: MULTIPLE SCLEROSIS

REACTIONS (7)
  - OXYGEN SATURATION DECREASED [None]
  - FEELING ABNORMAL [None]
  - LOWER LIMB FRACTURE [None]
  - ACCIDENT [None]
  - THROMBOSIS [None]
  - HIP FRACTURE [None]
  - HYPOTENSION [None]
